FAERS Safety Report 4950053-7 (Version None)
Quarter: 2006Q1

REPORT INFORMATION
  Report Type: 
  Country: None (occurrence: None)
  Receive Date: 20060320
  Receipt Date: 20060320
  Transmission Date: 20060701
  Serious: Yes (Life-Threatening)
  Sender: FDA-Public Use
  Company Number: None

PATIENT
  Age: 64 Year
  Sex: Male
  Weight: 80.7403 kg

DRUGS (1)
  1. WELLBUTRIN [Suspect]
     Indication: SMOKING CESSATION THERAPY
     Dosage: 150 MG TWICE DAILY PO
     Route: 048
     Dates: start: 20060308, end: 20060311

REACTIONS (9)
  - CONVULSION [None]
  - COUGH [None]
  - DEPRESSION [None]
  - DYSPNOEA [None]
  - DYSSTASIA [None]
  - FEELING ABNORMAL [None]
  - HEADACHE [None]
  - INCREASED UPPER AIRWAY SECRETION [None]
  - TREMOR [None]
